FAERS Safety Report 9006177 (Version 3)
Quarter: 2013Q3

REPORT INFORMATION
  Report Type: Spontaneous
  Country: US (occurrence: None)
  Receive Date: 20121226
  Receipt Date: 20130815
  Transmission Date: 20140515
  Serious: Yes (Other)
  Sender: FDA-Public Use
  Company Number: ADR-2012-01691

PATIENT
  Sex: Female

DRUGS (1)
  1. LIORESAL [Suspect]
     Indication: MUSCLE SPASTICITY

REACTIONS (6)
  - Muscle spasticity [None]
  - Device malfunction [None]
  - Device damage [None]
  - Drug effect decreased [None]
  - Dysstasia [None]
  - Adverse event [None]
